FAERS Safety Report 13134027 (Version 5)
Quarter: 2017Q1

REPORT INFORMATION
  Report Type: Spontaneous
  Country: FR (occurrence: FR)
  Receive Date: 20170120
  Receipt Date: 20170323
  Transmission Date: 20170428
  Serious: Yes (Other)
  Sender: FDA-Public Use
  Company Number: FR-BIOVITRUM-2017FR0028

PATIENT
  Age: 54 Year
  Sex: Male

DRUGS (5)
  1. DEDROGYL [Concomitant]
     Active Substance: CALCIFEDIOL
  2. CALCIT VIT D3 [Concomitant]
  3. DIFFUK [Concomitant]
     Active Substance: POTASSIUM CHLORIDE
  4. KINERET [Suspect]
     Active Substance: ANAKINRA
     Indication: STILL^S DISEASE ADULT ONSET
     Dates: start: 201502, end: 20161209
  5. INEXUM [Concomitant]

REACTIONS (15)
  - Anal fissure [Recovered/Resolved]
  - Haemorrhoids [Unknown]
  - Adenocarcinoma of colon [Recovered/Resolved]
  - Diverticulum [Unknown]
  - Poor quality sleep [Unknown]
  - Constipation [Recovered/Resolved]
  - Lung hyperinflation [Unknown]
  - Hypotension [Unknown]
  - Dizziness [Not Recovered/Not Resolved]
  - Polyp [Recovered/Resolved]
  - Anal ulcer [Unknown]
  - Heart rate increased [Recovered/Resolved]
  - Immune system disorder [Unknown]
  - Rectal haemorrhage [Recovering/Resolving]
  - Tongue discolouration [Unknown]

NARRATIVE: CASE EVENT DATE: 2015
